FAERS Safety Report 7340122-9 (Version None)
Quarter: 2011Q1

REPORT INFORMATION
  Report Type: 
  Country: None (occurrence: None)
  Receive Date: 20110228
  Receipt Date: 20110214
  Transmission Date: 20110831
  Serious: Yes (Other)
  Sender: FDA-Public Use
  Company Number: 2011000707

PATIENT
  Age: 49 Year
  Sex: Female

DRUGS (1)
  1. TARCEVA [Suspect]
     Indication: LUNG SQUAMOUS CELL CARCINOMA STAGE UNSPECIFIED
     Dosage: (150 MG,QD),ORAL
     Route: 048
     Dates: start: 20101122, end: 20110126

REACTIONS (6)
  - DISEASE PROGRESSION [None]
  - LUNG SQUAMOUS CELL CARCINOMA STAGE UNSPECIFIED [None]
  - RASH [None]
  - HIRSUTISM [None]
  - DRY SKIN [None]
  - GLAUCOMA [None]
